FAERS Safety Report 4284070-X (Version None)
Quarter: 2004Q1

REPORT INFORMATION
  Report Type: 
  Country: None (occurrence: None)
  Receive Date: 20040130
  Receipt Date: 20040121
  Transmission Date: 20041129
  Serious: Yes (Hospitalization, Other)
  Sender: FDA-Public Use
  Company Number: US-JNJFOC-20040105143

PATIENT
  Sex: Male
  Weight: 2.3587 kg

DRUGS (3)
  1. ULTRAM [Suspect]
     Indication: FIBROMYALGIA
     Dosage: 100 MG, 3 IN 1 DAY, ORAL
     Route: 048
     Dates: start: 19950101
  2. TYLENOL [Concomitant]
  3. PRENATAL VITAMIN [Concomitant]

REACTIONS (5)
  - CAESAREAN SECTION [None]
  - CARDIAC MONITORING [None]
  - COMPLICATIONS OF MATERNAL EXPOSURE TO THERAPEUTIC DRUGS [None]
  - MATERNAL DRUGS AFFECTING FOETUS [None]
  - PREMATURE BABY [None]
